FAERS Safety Report 7568438-1 (Version None)
Quarter: 2011Q2

REPORT INFORMATION
  Report Type: 
  Country: None (occurrence: None)
  Receive Date: 20110617
  Receipt Date: 20110609
  Transmission Date: 20111010
  Serious: Yes (Other)
  Sender: FDA-Public Use
  Company Number: 1000021612

PATIENT
  Sex: Female

DRUGS (1)
  1. BYSTOLIC [Suspect]

REACTIONS (2)
  - SUICIDAL IDEATION [None]
  - HOMICIDAL IDEATION [None]
